FAERS Safety Report 14715304 (Version 1)
Quarter: 2018Q2

REPORT INFORMATION
  Report Type: Spontaneous
  Country: FR (occurrence: FR)
  Receive Date: 20180404
  Receipt Date: 20180404
  Transmission Date: 20180711
  Serious: Yes (Hospitalization)
  Sender: FDA-Public Use
  Company Number: FR-JNJFOC-20180400579

PATIENT
  Age: 46 Year
  Sex: Female
  Weight: 67.4 kg

DRUGS (5)
  1. LUTENYL [Suspect]
     Active Substance: NOMEGESTROL ACETATE
     Indication: CONTRACEPTION
     Route: 048
     Dates: end: 20171130
  2. SPOTOF [Suspect]
     Active Substance: TRANEXAMIC ACID
     Indication: METRORRHAGIA
     Route: 048
     Dates: start: 201711, end: 201711
  3. ESCITALOPRAM [Concomitant]
     Active Substance: ESCITALOPRAM OXALATE
     Route: 065
  4. STELARA [Suspect]
     Active Substance: USTEKINUMAB
     Indication: PSORIASIS
     Route: 058
     Dates: start: 20170824, end: 20171130
  5. ZOLMITRIPTAN. [Concomitant]
     Active Substance: ZOLMITRIPTAN
     Route: 065

REACTIONS (2)
  - Ovarian vein thrombosis [Recovering/Resolving]
  - Pulmonary embolism [Recovering/Resolving]
